FAERS Safety Report 19231603 (Version 2)
Quarter: 2021Q2

REPORT INFORMATION
  Report Type: Report from Study
  Country: US (occurrence: US)
  Receive Date: 20210507
  Receipt Date: 20210608
  Transmission Date: 20210717
  Serious: Yes (Other)
  Sender: FDA-Public Use
  Company Number: US-JAZZ-2021-US-008042

PATIENT
  Sex: Male

DRUGS (3)
  1. XYREM [Suspect]
     Active Substance: SODIUM OXYBATE
     Indication: NARCOLEPSY
     Dosage: 2.25 GRAM, BID
     Route: 048
     Dates: start: 201304, end: 201305
  2. XYREM [Suspect]
     Active Substance: SODIUM OXYBATE
     Dosage: DOSE ADJUSTMENT
     Route: 048
     Dates: start: 201304, end: 202005
  3. XYREM [Suspect]
     Active Substance: SODIUM OXYBATE
     Dosage: 3.5 GRAM, BID
     Route: 048
     Dates: start: 202005

REACTIONS (10)
  - Muscle strain [Unknown]
  - Restless legs syndrome [Recovered/Resolved]
  - Dyspnoea [Not Recovered/Not Resolved]
  - Heart rate abnormal [Recovering/Resolving]
  - Visual impairment [Unknown]
  - Muscle atrophy [Not Recovered/Not Resolved]
  - Spinal operation [Unknown]
  - Ejection fraction decreased [Unknown]
  - Feeling abnormal [Unknown]
  - Glucose tolerance impaired [Recovered/Resolved]

NARRATIVE: CASE EVENT DATE: 2018
